FAERS Safety Report 9711690 (Version 1)
Quarter: 2013Q4

REPORT INFORMATION
  Report Type: Spontaneous
  Country: US (occurrence: None)
  Receive Date: 20131125
  Receipt Date: 20131125
  Transmission Date: 20140711
  Serious: Yes (Hospitalization)
  Sender: FDA-Public Use
  Company Number: None

PATIENT
  Age: 90 Year
  Sex: Male
  Weight: 92.99 kg

DRUGS (3)
  1. ALEVE 220 MG BAYER HEALTH CARE [Suspect]
     Indication: ARTHRALGIA
     Dosage: 1 PILL TWICE DAILY TAKEN BY MOUTH
     Route: 048
     Dates: start: 20130904, end: 20130925
  2. ALEVE 220 MG BAYER HEALTH CARE [Suspect]
     Indication: ARTHRITIS
     Dosage: 1 PILL TWICE DAILY TAKEN BY MOUTH
     Route: 048
     Dates: start: 20130904, end: 20130925
  3. ALEVE 220 MG BAYER HEALTH CARE [Suspect]
     Indication: MENISCUS INJURY
     Dosage: 1 PILL TWICE DAILY TAKEN BY MOUTH
     Route: 048
     Dates: start: 20130904, end: 20130925

REACTIONS (1)
  - Haematochezia [None]
